FAERS Safety Report 13140802 (Version 2)
Quarter: 2017Q2

REPORT INFORMATION
  Report Type: Report from Study
  Country: AR (occurrence: AR)
  Receive Date: 20170123
  Receipt Date: 20170529
  Transmission Date: 20170830
  Serious: Yes (Hospitalization)
  Sender: FDA-Public Use
  Company Number: AR-ASTRAZENECA-2016SF16893

PATIENT
  Age: 14550 Day
  Sex: Female

DRUGS (2)
  1. DAPAGLIFLOZIN [Suspect]
     Active Substance: DAPAGLIFLOZIN
     Indication: TYPE 1 DIABETES MELLITUS
     Route: 048
     Dates: start: 20160929, end: 20161102
  2. GLUCOSE [Concomitant]
     Active Substance: DEXTROSE
     Route: 042

REACTIONS (1)
  - Hypoglycaemic seizure [Recovered/Resolved]

NARRATIVE: CASE EVENT DATE: 20161102
